FAERS Safety Report 9266825 (Version 10)
Quarter: 2013Q4

REPORT INFORMATION
  Report Type: Report from Study
  Country: CA (occurrence: CA)
  Receive Date: 20130502
  Receipt Date: 20131007
  Transmission Date: 20140711
  Serious: Yes (Other)
  Sender: FDA-Public Use
  Company Number: CA-ROCHE-1154212

PATIENT
  Age: 80 Year
  Sex: Female
  Weight: 100 kg

DRUGS (25)
  1. ACTEMRA [Suspect]
     Indication: RHEUMATOID ARTHRITIS
     Route: 042
     Dates: start: 20121017
  2. RITUXAN [Suspect]
     Indication: RHEUMATOID ARTHRITIS
     Route: 042
     Dates: start: 20100330, end: 20110621
  3. METHOTREXATE [Suspect]
     Indication: PRODUCT USED FOR UNKNOWN INDICATION
     Route: 065
  4. TORADOL [Suspect]
     Indication: PRODUCT USED FOR UNKNOWN INDICATION
     Route: 065
  5. FLU VACCINE [Concomitant]
     Route: 065
     Dates: start: 20121030, end: 20121030
  6. NITROFURANTOIN [Concomitant]
  7. LOSEC (CANADA) [Concomitant]
  8. LOZIDE [Concomitant]
  9. ALTACE [Concomitant]
  10. ACTONEL [Concomitant]
  11. ASPIRIN [Concomitant]
     Route: 065
  12. CODEINE [Concomitant]
  13. TRAZODONE [Concomitant]
  14. ROBITUSSIN (CANADA) [Concomitant]
     Route: 065
  15. CLARITIN [Concomitant]
     Route: 065
  16. TEARS PLUS [Concomitant]
  17. SYSTANE [Concomitant]
  18. SENOKOT [Concomitant]
  19. SOFLAX (CANADA) [Concomitant]
  20. BENADRYL [Concomitant]
     Indication: PREMEDICATION
     Route: 065
     Dates: start: 20130306
  21. BENADRYL [Concomitant]
     Route: 048
     Dates: start: 20130403
  22. CLONAZEPAM [Concomitant]
  23. PREDNISONE [Concomitant]
     Indication: PREMEDICATION
     Dosage: PREMEDICATION13 HOURS PRIOR  TO INFUSION
     Route: 048
     Dates: start: 20130402
  24. PREDNISONE [Concomitant]
     Dosage: PRIOR TO 30/APR/2013
     Route: 048
  25. REACTINE (CANADA) [Concomitant]
     Indication: PREMEDICATION
     Dosage: PREMEDICATION1 HOUR PRIOR  TO INFUSION
     Route: 048
     Dates: start: 20130430

REACTIONS (18)
  - Sjogren^s syndrome [Not Recovered/Not Resolved]
  - Rash [Recovering/Resolving]
  - Cough [Not Recovered/Not Resolved]
  - Urinary tract infection [Not Recovered/Not Resolved]
  - Viral upper respiratory tract infection [Recovered/Resolved]
  - Eye pruritus [Unknown]
  - Pruritus [Unknown]
  - Dizziness [Recovered/Resolved]
  - Headache [Recovered/Resolved]
  - Lip swelling [Recovered/Resolved]
  - Drug hypersensitivity [Unknown]
  - Upper extremity mass [Recovering/Resolving]
  - Rash pruritic [Recovering/Resolving]
  - Tendonitis [Not Recovered/Not Resolved]
  - Dental caries [Recovering/Resolving]
  - Pain in extremity [Recovering/Resolving]
  - Rheumatoid arthritis [Recovering/Resolving]
  - Drug ineffective [Unknown]
